FAERS Safety Report 20255181 (Version 1)
Quarter: 2021Q4

REPORT INFORMATION
  Report Type: Spontaneous
  Country: DE (occurrence: DE)
  Receive Date: 20211230
  Receipt Date: 20211230
  Transmission Date: 20220303
  Serious: Yes (Hospitalization)
  Sender: FDA-Public Use
  Company Number: DE-ADRED-07231-01

PATIENT
  Age: 47 Year
  Sex: Male
  Weight: 140 kg

DRUGS (17)
  1. DOXORUBICIN [Suspect]
     Active Substance: DOXORUBICIN
     Dosage: SOLUTION FOR INJECTION / INFUSION
     Route: 065
  2. ETOPOSIDE [Suspect]
     Active Substance: ETOPOSIDE
     Dosage: SOLUTION FOR INJECTION / INFUSION
     Route: 065
  3. PREDNISOLONE [Suspect]
     Active Substance: PREDNISOLONE
     Dosage: 75 MG, ONE TABLET BY JULY THIRTEENTH, TABLETS
     Route: 048
  4. BLEOMYCIN [Suspect]
     Active Substance: BLEOMYCIN SULFATE
     Dosage: SOLUTION FOR INJECTION / INFUSION
     Route: 065
  5. CYCLOPHOSPHAMIDE [Suspect]
     Active Substance: CYCLOPHOSPHAMIDE
     Dosage: SOLUTION FOR INJECTION / INFUSION
     Route: 065
  6. PROCARBAZINE [Suspect]
     Active Substance: PROCARBAZINE
     Dosage: 200 MG, FOUR TABLETS THROUGH JULY SIXTH, TABLETS
     Route: 048
  7. AMLODIPINE BESYLATE [Concomitant]
     Active Substance: AMLODIPINE BESYLATE
     Dosage: 10 MILLIGRAM DAILY; 1-0-1-0
     Route: 048
  8. METOPROLOL [Concomitant]
     Active Substance: METOPROLOL
     Dosage: 190 MILLIGRAM DAILY; 1-0-1-0,SUSTAINED-RELEASE TABLETS
     Route: 048
  9. RAMIPRIL [Concomitant]
     Active Substance: RAMIPRIL
     Dosage: 5 MILLIGRAM DAILY; 1-0-0-0
     Route: 048
  10. ALLOPURINOL [Concomitant]
     Active Substance: ALLOPURINOL
     Dosage: 300 MILLIGRAM DAILY; 1-0-0-0
     Route: 048
  11. SULFAMETHOXAZOLE\TRIMETHOPRIM [Concomitant]
     Active Substance: SULFAMETHOXAZOLE\TRIMETHOPRIM
     Dosage: 960 MG, MONDAY WEDNESDAY FRIDAY ONE TABLET, TABLETS,CO-TRIMOXAZOLE AL FORTE
     Route: 048
  12. Alendronic acid / calcium / colecalciferol (vitamin D) [Concomitant]
     Dosage: 2 DOSAGE FORMS DAILY; 0-0-2-0, EFFERVESCENT TABLETS
     Route: 048
  13. METAMIZOL [Concomitant]
     Active Substance: METAMIZOLE SODIUM
     Dosage: 8 DOSAGE FORMS DAILY; 500 MG, 2-2-2-2
     Route: 048
  14. NALOXONE HYDROCHLORIDE\OXYCODONE HYDROCHLORIDE [Concomitant]
     Active Substance: NALOXONE HYDROCHLORIDE\OXYCODONE HYDROCHLORIDE
     Dosage: 4 DOSAGE FORMS DAILY; 5 | 10 MG, 2-0-2-0
     Route: 048
  15. DULOXETINE [Concomitant]
     Active Substance: DULOXETINE
     Dosage: 4 DOSAGE FORMS DAILY; 30 MG, 4-0-0-0
     Route: 048
  16. QUETIAPINE [Concomitant]
     Active Substance: QUETIAPINE
     Dosage: 50 MILLIGRAM DAILY; 0-0-1-0
     Route: 048
  17. TINZAPARIN [Concomitant]
     Active Substance: TINZAPARIN
     Dosage: 20000 IU (INTERNATIONAL UNIT) DAILY; 1-0-0-0, PRE-FILLED SYRINGES
     Route: 058

REACTIONS (3)
  - Fatigue [Unknown]
  - Erythema [Unknown]
  - Purpura [Unknown]
